FAERS Safety Report 11820100 (Version 10)
Quarter: 2019Q4

REPORT INFORMATION
  Report Type: Report from Study
  Country: US (occurrence: US)
  Receive Date: 20151210
  Receipt Date: 20191101
  Transmission Date: 20200122
  Serious: Yes (Other)
  Sender: FDA-Public Use
  Company Number: PHHY2015US159814

PATIENT
  Age: 46 Year
  Sex: Female
  Weight: 61 kg

DRUGS (1)
  1. GILENYA [Suspect]
     Active Substance: FINGOLIMOD HYDROCHLORIDE
     Indication: MULTIPLE SCLEROSIS
     Dosage: 0.5 MG, QD
     Route: 048
     Dates: start: 20150924

REACTIONS (8)
  - White blood cell count decreased [Not Recovered/Not Resolved]
  - Oropharyngeal pain [Unknown]
  - Throat tightness [Unknown]
  - Paraesthesia [Unknown]
  - Headache [Unknown]
  - Fatigue [Unknown]
  - Lymphocyte count decreased [Not Recovered/Not Resolved]
  - Micturition urgency [Unknown]

NARRATIVE: CASE EVENT DATE: 20151001
